FAERS Safety Report 21599058 (Version 2)
Quarter: 2022Q4

REPORT INFORMATION
  Report Type: Spontaneous
  Country: JP (occurrence: JP)
  Receive Date: 20221115
  Receipt Date: 20221129
  Transmission Date: 20230113
  Serious: Yes (Death, Hospitalization)
  Sender: FDA-Public Use
  Company Number: JP-TEVA-2022-JP-2826206

PATIENT
  Age: 84 Year
  Sex: Female

DRUGS (8)
  1. GALANTAMINE [Suspect]
     Active Substance: GALANTAMINE
     Indication: Dementia Alzheimer^s type
     Dosage: 8 MILLIGRAM DAILY; FOR LAST 9 YEARS
     Route: 065
  2. HERBALS [Suspect]
     Active Substance: HERBALS
     Indication: Dementia Alzheimer^s type
     Dosage: CONTAINING LICORICE 1.5 G; FOR MORE THAN 10 YEARS
     Route: 065
  3. POTASSIUM [Suspect]
     Active Substance: POTASSIUM
     Indication: Arrhythmia prophylaxis
     Route: 042
  4. MAGNESIUM [Suspect]
     Active Substance: MAGNESIUM
     Indication: Arrhythmia prophylaxis
     Route: 042
  5. ASPIRIN [Concomitant]
     Active Substance: ASPIRIN
     Indication: Cerebral infarction
     Dosage: 100 MILLIGRAM DAILY;
     Route: 065
  6. VONOPRAZAN [Concomitant]
     Active Substance: VONOPRAZAN
     Indication: Chronic gastritis
     Dosage: 10 MILLIGRAM DAILY;
     Route: 065
  7. MEMANTINE [Concomitant]
     Active Substance: MEMANTINE
     Indication: Dementia Alzheimer^s type
     Dosage: 10 MILLIGRAM DAILY;
     Route: 065
  8. RAMELTEON [Concomitant]
     Active Substance: RAMELTEON
     Indication: Dementia Alzheimer^s type
     Dosage: 8 MILLIGRAM DAILY;
     Route: 065

REACTIONS (10)
  - Stress cardiomyopathy [Fatal]
  - Electrocardiogram QT prolonged [Fatal]
  - Torsade de pointes [Fatal]
  - Arrhythmia [Fatal]
  - Ventricular tachycardia [Fatal]
  - Drug ineffective [Fatal]
  - Pseudoaldosteronism [Unknown]
  - Cardiac failure acute [Unknown]
  - Cardiomegaly [Unknown]
  - Cardiogenic shock [Unknown]
